FAERS Safety Report 7161471-3 (Version None)
Quarter: 2010Q4

REPORT INFORMATION
  Report Type: 
  Country: None (occurrence: None)
  Receive Date: 20101215
  Receipt Date: 20101210
  Transmission Date: 20110411
  Serious: Yes (Death)
  Sender: FDA-Public Use
  Company Number: PHHY2010TW44716

PATIENT
  Age: 75 Year
  Sex: Female

DRUGS (1)
  1. ACLASTA [Suspect]
     Indication: OSTEOPOROSIS POSTMENOPAUSAL
     Dosage: 5 MG/100 ML, YEARLY
     Route: 042
     Dates: start: 20100629

REACTIONS (4)
  - DEATH [None]
  - DECREASED APPETITE [None]
  - DYSSTASIA [None]
  - PAIN [None]
